FAERS Safety Report 8133465-2 (Version None)
Quarter: 2012Q1

REPORT INFORMATION
  Report Type: 
  Country: None (occurrence: None)
  Receive Date: 20120103
  Receipt Date: 20111110
  Transmission Date: 20120608
  Serious: No
  Sender: FDA-Public Use
  Company Number: AE-2011-003336

PATIENT
  Age: 52 Year
  Sex: Male
  Weight: 72.5755 kg

DRUGS (6)
  1. INCIVEK [Suspect]
     Dosage: 2250 MG (750 MG,1 IN 8 HR),ORAL
     Route: 048
     Dates: start: 20111018
  2. RENAGEL [Concomitant]
  3. LISINOPRIL [Concomitant]
  4. PEGASYS [Concomitant]
  5. METOPROLOL TARTRATE [Concomitant]
  6. DOCUSATE SODIUM (DOCUSATE SODIUM) [Concomitant]

REACTIONS (6)
  - ASTHENIA [None]
  - DRUG DOSE OMISSION [None]
  - DYSPNOEA [None]
  - HEADACHE [None]
  - DECREASED APPETITE [None]
  - INSOMNIA [None]
